FAERS Safety Report 16329218 (Version 2)
Quarter: 2019Q2

REPORT INFORMATION
  Report Type: Other
  Country: NL (occurrence: NL)
  Receive Date: 20190520
  Receipt Date: 20190604
  Transmission Date: 20190711
  Serious: Yes (Disabling, Other)
  Sender: FDA-Public Use
  Company Number: NL-DEXPHARM-20190327

PATIENT
  Age: 63 Year
  Sex: Male

DRUGS (11)
  1. CLEMASTINE [Suspect]
     Active Substance: CLEMASTINE
     Route: 042
  2. TICAGRELOR. [Suspect]
     Active Substance: TICAGRELOR
     Route: 048
  3. EPHEDRINE. [Suspect]
     Active Substance: EPHEDRINE
     Route: 041
  4. HYDROCORTISONE. [Suspect]
     Active Substance: HYDROCORTISONE
     Route: 042
  5. ADRENALINE [Suspect]
     Active Substance: EPINEPHRINE
     Dosage: 5 ML ADRENALINE SOLUTION 1:1000
  6. DICLOFENAC SODIUM NON DEXCEL PRODUCT [Suspect]
     Active Substance: DICLOFENAC SODIUM
     Dosage: 75 MG DICLOFENAC DISSOLVED IN 100 ML OF SALINE
     Route: 041
  7. ATROPINE. [Suspect]
     Active Substance: ATROPINE
     Route: 042
  8. ADRENALINE [Suspect]
     Active Substance: EPINEPHRINE
     Route: 042
  9. ADRENALINE [Suspect]
     Active Substance: EPINEPHRINE
     Route: 042
  10. PHENYLEPHRINE [Suspect]
     Active Substance: PHENYLEPHRINE\PHENYLEPHRINE HYDROCHLORIDE
     Route: 041
  11. ADRENALINE [Suspect]
     Active Substance: EPINEPHRINE
     Route: 042

REACTIONS (1)
  - Kounis syndrome [Recovered/Resolved with Sequelae]
